FAERS Safety Report 24123013 (Version 1)
Quarter: 2024Q3

REPORT INFORMATION
  Report Type: Report from Study
  Country: US (occurrence: US)
  Receive Date: 20240723
  Receipt Date: 20240723
  Transmission Date: 20241016
  Serious: Yes (Hospitalization, Other)
  Sender: AUROBINDO
  Company Number: US-AUROBINDO-AUR-APL-2024-035500

PATIENT
  Age: 52 Day

DRUGS (18)
  1. LEVETIRACETAM [Suspect]
     Active Substance: LEVETIRACETAM
     Indication: Status epilepticus
     Dosage: 60 MILLIGRAM/KILOGRAM
     Route: 042
  2. LEVETIRACETAM [Suspect]
     Active Substance: LEVETIRACETAM
     Dosage: 15 MILLIGRAM/KILOGRAM, TWO TIMES A DAY
     Route: 042
  3. LEVETIRACETAM [Suspect]
     Active Substance: LEVETIRACETAM
     Dosage: 30 MILLIGRAM/KILOGRAM, TWO TIMES A DAY
     Route: 048
  4. LORAZEPAM [Suspect]
     Active Substance: LORAZEPAM
     Indication: Status epilepticus
     Dosage: 0.1 MILLIGRAM/KILOGRAM
     Route: 042
  5. KETAMINE HYDROCHLORIDE [Suspect]
     Active Substance: KETAMINE HYDROCHLORIDE
     Indication: Status epilepticus
     Dosage: 1 MILLIGRAM/KILOGRAM, OVER 2 TO 3 MINUTES
     Route: 040
  6. KETAMINE HYDROCHLORIDE [Suspect]
     Active Substance: KETAMINE HYDROCHLORIDE
     Indication: Seizure
     Dosage: 1 MILLIGRAM/KILOGRAM, EVERY HOUR
     Route: 042
  7. FOSPHENYTOIN [Suspect]
     Active Substance: FOSPHENYTOIN
     Indication: Status epilepticus
     Dosage: 20 MILLIGRAM PES/KG
     Route: 042
  8. FOSPHENYTOIN [Suspect]
     Active Substance: FOSPHENYTOIN
     Indication: Seizure
     Dosage: 10 MILLIGRAM PES/KG
     Route: 042
  9. MIDAZOLAM [Suspect]
     Active Substance: MIDAZOLAM
     Indication: Status epilepticus
     Dosage: 0.1 MILLIGRAM/KILOGRAM, EVERY HOUR
     Route: 042
  10. MIDAZOLAM [Suspect]
     Active Substance: MIDAZOLAM
     Indication: Seizure
     Dosage: 0.5 MILLIGRAM/KILOGRAM, EVERY HOUR (OVER 12 HOURS)
     Route: 042
  11. MIDAZOLAM [Suspect]
     Active Substance: MIDAZOLAM
     Dosage: 0.2 MILLIGRAM/KILOGRAM
     Route: 045
  12. PHENOBARBITAL [Suspect]
     Active Substance: PHENOBARBITAL
     Indication: Status epilepticus
     Dosage: 20 MILLIGRAM/KILOGRAM
     Route: 042
  13. PHENOBARBITAL [Suspect]
     Active Substance: PHENOBARBITAL
     Indication: Seizure
     Dosage: 10 MILLIGRAM/KILOGRAM
     Route: 042
  14. PHENOBARBITAL [Suspect]
     Active Substance: PHENOBARBITAL
     Dosage: 4 MILLIGRAM/KILOGRAM, TWO TIMES A DAY
     Route: 048
  15. TOPIRAMATE [Concomitant]
     Active Substance: TOPIRAMATE
     Indication: Status epilepticus
     Dosage: 2 MILLIGRAM/KILOGRAM, TWO TIMES A DAY
     Route: 048
  16. TOPIRAMATE [Concomitant]
     Active Substance: TOPIRAMATE
     Dosage: 5 MILLIGRAM/KILOGRAM
     Route: 048
  17. LACOSAMIDE [Concomitant]
     Active Substance: LACOSAMIDE
     Indication: Status epilepticus
     Dosage: 2 MILLIGRAM/KILOGRAM, TWO TIMES A DAY
     Route: 048
  18. CLOBAZAM [Concomitant]
     Active Substance: CLOBAZAM
     Indication: Status epilepticus
     Dosage: 1 MILLIGRAM/KILOGRAM, TWO TIMES A DAY
     Route: 048

REACTIONS (1)
  - Drug ineffective [Unknown]
